FAERS Safety Report 22320837 (Version 1)
Quarter: 2023Q2

REPORT INFORMATION
  Report Type: Spontaneous
  Country: US (occurrence: US)
  Receive Date: 20230515
  Receipt Date: 20230515
  Transmission Date: 20230722
  Serious: Yes (Other)
  Sender: FDA-Public Use
  Company Number: US-APIL-2314444US

PATIENT
  Sex: Male

DRUGS (1)
  1. RESTASIS [Suspect]
     Active Substance: CYCLOSPORINE
     Indication: Product used for unknown indication
     Dosage: UNK

REACTIONS (6)
  - Blindness unilateral [Unknown]
  - Dry eye [Unknown]
  - Visual impairment [Unknown]
  - Meibomian gland dysfunction [Unknown]
  - Lacrimation increased [Unknown]
  - Drug ineffective [Unknown]
